FAERS Safety Report 18151162 (Version 1)
Quarter: 2020Q3

REPORT INFORMATION
  Report Type: Report from Study
  Country: BR (occurrence: BR)
  Receive Date: 20200814
  Receipt Date: 20200814
  Transmission Date: 20201103
  Serious: Yes (Hospitalization)
  Sender: FDA-Public Use
  Company Number: BR-AMGEN-BRASL2020128562

PATIENT
  Age: 94 Year
  Sex: Female

DRUGS (12)
  1. ALPRAZOLAM. [Concomitant]
     Active Substance: ALPRAZOLAM
     Dosage: 0.05 MILLIGRAM
  2. REMERON [Concomitant]
     Active Substance: MIRTAZAPINE
     Dosage: 30 MILLIGRAM
  3. BICARBONATE [Concomitant]
     Active Substance: SODIUM BICARBONATE
     Indication: BLOOD SODIUM INCREASED
     Dosage: UNK, A SPOON AFTER DINNER
  4. CALMING [Concomitant]
  5. FAMOTIDINE. [Concomitant]
     Active Substance: FAMOTIDINE
     Indication: GASTRIC DISORDER
     Dosage: 20 MILLIGRAM
  6. DESLORATADINE. [Concomitant]
     Active Substance: DESLORATADINE
  7. ALDACTONE [Concomitant]
     Active Substance: SPIRONOLACTONE
  8. PROLIA [Suspect]
     Active Substance: DENOSUMAB
     Indication: OSTEOPOROSIS
     Dosage: UNK, Q6MO
     Route: 058
  9. EUTIROX [Concomitant]
     Active Substance: LEVOTHYROXINE SODIUM
     Dosage: 100 UNK
  10. VELOS [Concomitant]
     Dosage: UNK UNK, QD
  11. ALPRAZOLAM. [Concomitant]
     Active Substance: ALPRAZOLAM
     Dosage: 0.25 MILLIGRAM, QD
  12. LOSARTAN. [Concomitant]
     Active Substance: LOSARTAN
     Dosage: 25 MILLIGRAM

REACTIONS (10)
  - Alopecia [Recovering/Resolving]
  - Scab [Recovering/Resolving]
  - Spinal deformity [Recovering/Resolving]
  - Dermatitis [Recovering/Resolving]
  - Erythema [Recovering/Resolving]
  - Jaw disorder [Recovering/Resolving]
  - Body height decreased [Recovering/Resolving]
  - Mobility decreased [Recovering/Resolving]
  - Oedema peripheral [Recovering/Resolving]
  - Fatigue [Recovering/Resolving]
